FAERS Safety Report 6734231-2 (Version None)
Quarter: 2010Q2

REPORT INFORMATION
  Report Type: 
  Country: None (occurrence: None)
  Receive Date: 20100520
  Receipt Date: 20100507
  Transmission Date: 20101027
  Serious: Yes (Other)
  Sender: FDA-Public Use
  Company Number: PHHY2009CA56002

PATIENT
  Sex: Female

DRUGS (2)
  1. SANDOSTATIN LAR [Suspect]
     Indication: ACROMEGALY
     Dosage: 20 MG EVERY FOUR WEEKS
     Route: 030
     Dates: start: 20091119
  2. SANDOSTATIN LAR [Suspect]
     Dosage: 30 MG, EVERY 4 WEEKS
     Dates: start: 20100310

REACTIONS (10)
  - BLOOD PRESSURE INCREASED [None]
  - BREAST CANCER [None]
  - BREAST MASS [None]
  - CHILLS [None]
  - DIARRHOEA [None]
  - GASTROINTESTINAL SOUNDS ABNORMAL [None]
  - HOT FLUSH [None]
  - HYPERHIDROSIS [None]
  - LABOUR PAIN [None]
  - METASTASES TO LIVER [None]
